FAERS Safety Report 5384721-2 (Version None)
Quarter: 2007Q3

REPORT INFORMATION
  Report Type: 
  Country: None (occurrence: None)
  Receive Date: 20070711
  Receipt Date: 20070629
  Transmission Date: 20080115
  Serious: Yes (Other)
  Sender: FDA-Public Use
  Company Number: US-PFIZER INC-2007054206

PATIENT
  Age: 82 Year
  Sex: Female

DRUGS (6)
  1. REVATIO [Suspect]
     Indication: PULMONARY HYPERTENSION
  2. DIGITEK [Concomitant]
  3. MONTELUKAST SODIUM [Concomitant]
  4. PRAVACHOL [Concomitant]
  5. DIAZEPAM [Concomitant]
  6. SYPRINE [Concomitant]

REACTIONS (5)
  - ARTERIAL STENOSIS [None]
  - BLINDNESS TRANSIENT [None]
  - PHOTOPHOBIA [None]
  - VISION BLURRED [None]
  - VISUAL ACUITY REDUCED [None]
